FAERS Safety Report 8555188-8 (Version None)
Quarter: 2012Q3

REPORT INFORMATION
  Report Type: 
  Country: None (occurrence: None)
  Receive Date: 20120731
  Receipt Date: 20120724
  Transmission Date: 20120928
  Serious: Yes (Hospitalization, Other)
  Sender: FDA-Public Use
  Company Number: US-009507513-2009SP030531

PATIENT

DRUGS (2)
  1. NUVARING [Suspect]
     Indication: PRODUCT USED FOR UNKNOWN INDICATION
     Dates: start: 20050601
  2. IMITREX [Concomitant]
     Indication: MIGRAINE
     Dosage: NOTED TO HAVE TAKEN ON 15DEC2005 AND 16DEC2005
     Route: 058

REACTIONS (22)
  - HEMIPLEGIA [None]
  - HYPERLIPIDAEMIA [None]
  - CAROTID ARTERY OCCLUSION [None]
  - HUMAN PAPILLOMA VIRUS TEST POSITIVE [None]
  - SLEEP DISORDER [None]
  - PAIN [None]
  - BREAST DISORDER [None]
  - LOSS OF CONSCIOUSNESS [None]
  - HEAD INJURY [None]
  - DEPRESSION [None]
  - UTERINE CERVICAL SQUAMOUS METAPLASIA [None]
  - VISUAL FIELD DEFECT [None]
  - CEREBRAL INFARCTION [None]
  - ANKLE FRACTURE [None]
  - ISCHAEMIA [None]
  - MICTURITION URGENCY [None]
  - URINARY INCONTINENCE [None]
  - SINUS BRADYCARDIA [None]
  - WEIGHT INCREASED [None]
  - CONCUSSION [None]
  - SUICIDAL IDEATION [None]
  - RECTOCELE [None]
